FAERS Safety Report 4288463-6 (Version None)
Quarter: 2004Q1

REPORT INFORMATION
  Report Type: 
  Country: None (occurrence: None)
  Receive Date: 20040205
  Receipt Date: 20040119
  Transmission Date: 20041129
  Serious: Yes (Other)
  Sender: FDA-Public Use
  Company Number: USA020616995

PATIENT
  Age: 54 Year
  Sex: Female
  Weight: 136 kg

DRUGS (10)
  1. HUMULIN 70/30 [Suspect]
     Indication: DIABETES MELLITUS
     Dosage: 30 U/IN THE MORNING
     Dates: start: 20020219
  2. HUMULIN R [Suspect]
     Indication: DIABETES MELLITUS
     Dates: start: 20020219
  3. NPH INSULIN [Suspect]
     Indication: DIABETES MELLITUS
     Dosage: 10 U/IN THE EVENING
     Dates: start: 20020219
  4. HUMALOG [Suspect]
     Indication: DIABETES MELLITUS
     Dates: start: 20020201
  5. PLAVIX [Concomitant]
  6. CLOPIDOGREL BISULFATE [Concomitant]
  7. ENALAPRIL [Concomitant]
  8. HYDROCHLOROTHIAZIDE [Concomitant]
  9. CHLORDIAZEPOXIDE HCL [Concomitant]
  10. CLIDINIUM BROMIDE [Concomitant]

REACTIONS (6)
  - ABDOMINAL PAIN UPPER [None]
  - CEREBROVASCULAR ACCIDENT [None]
  - HYPERGLYCAEMIA [None]
  - HYPOGLYCAEMIA [None]
  - INJECTION SITE HAEMORRHAGE [None]
  - WEIGHT INCREASED [None]
